FAERS Safety Report 11820114 (Version 1)
Quarter: 2015Q4

REPORT INFORMATION
  Report Type: Spontaneous
  Country: US (occurrence: None)
  Receive Date: 20151125
  Receipt Date: 20151125
  Transmission Date: 20160305
  Serious: Yes (Other)
  Sender: FDA-Public Use
  Company Number: AUR-APL-2014-11629

PATIENT
  Age: 57 Year
  Sex: Female

DRUGS (1)
  1. MELOXICAM (MELOXICAM) UNKNOWN, UNKNOWN [Suspect]
     Active Substance: MELOXICAM
     Indication: PRODUCT USED FOR UNKNOWN INDICATION
     Dosage: ONCE A DAY

REACTIONS (4)
  - Dyspepsia [None]
  - Insomnia [None]
  - Myocardial infarction [None]
  - Abdominal discomfort [None]
